FAERS Safety Report 8849745 (Version 1)
Quarter: 2012Q4

REPORT INFORMATION
  Report Type: 
  Country: US (occurrence: US)
  Receive Date: 20121019
  Receipt Date: 20121019
  Transmission Date: 20130627
  Serious: Yes (Other)
  Sender: FDA-Public Use
  Company Number: US-ROCHE-1131765

PATIENT
  Age: 19 None
  Sex: Female
  Weight: 45.36 kg

DRUGS (3)
  1. NUTROPIN [Suspect]
     Indication: HYPOPITUITARISM
     Route: 065
     Dates: start: 199611
  2. PROTROPIN [Suspect]
     Indication: PRODUCT USED FOR UNKNOWN INDICATION
     Route: 058
  3. SYNTHROID [Concomitant]
     Route: 065

REACTIONS (12)
  - Malaise [Unknown]
  - Fatigue [Unknown]
  - Pituitary tumour benign [Unknown]
  - Osteonecrosis [Unknown]
  - Dysphonia [Unknown]
  - Oropharyngeal pain [Unknown]
  - Arthralgia [Unknown]
  - Asthenia [Unknown]
  - Fatigue [Unknown]
  - Polydipsia [Unknown]
  - Polyuria [Unknown]
  - Thirst [Unknown]
